FAERS Safety Report 9234938 (Version 1)
Quarter: 2013Q2

REPORT INFORMATION
  Report Type: Spontaneous
  Country: US (occurrence: US)
  Receive Date: 20130416
  Receipt Date: 20130416
  Transmission Date: 20140414
  Serious: No
  Sender: FDA-Public Use
  Company Number: US-BANPHARM-20120333

PATIENT
  Age: 63 Year
  Sex: Male
  Weight: 98 kg

DRUGS (3)
  1. ALEVE LIQUID GELS 220 MG [Suspect]
     Indication: PAIN
     Dosage: 3 DF, QD,
     Route: 048
     Dates: start: 20121103
  2. CORTIZONE SHOTS [Concomitant]
  3. HIGH BLOOD PRESSURE MEDICATION [Concomitant]

REACTIONS (3)
  - Drug effect incomplete [Unknown]
  - Drug effect delayed [Unknown]
  - Inappropriate schedule of drug administration [Unknown]
